FAERS Safety Report 11588351 (Version 3)
Quarter: 2016Q1

REPORT INFORMATION
  Report Type: Report from Study
  Country: US (occurrence: US)
  Receive Date: 20151002
  Receipt Date: 20160329
  Transmission Date: 20160525
  Serious: No
  Sender: FDA-Public Use
  Company Number: PHEH2015US019403

PATIENT
  Sex: Female
  Weight: 103.4 kg

DRUGS (1)
  1. GILENYA [Suspect]
     Active Substance: FINGOLIMOD HYDROCHLORIDE
     Indication: PRODUCT USED FOR UNKNOWN INDICATION
     Dosage: UNK
     Route: 048
     Dates: start: 20131125, end: 20141001

REACTIONS (5)
  - Gait disturbance [Unknown]
  - Muscular weakness [Unknown]
  - Paraesthesia [Unknown]
  - Blood pressure decreased [Unknown]
  - Maternal exposure during pregnancy [Unknown]
